FAERS Safety Report 8268245 (Version 2)
Quarter: 2013Q2

REPORT INFORMATION
  Report Type: Spontaneous
  Country: US (occurrence: None)
  Receive Date: 20111122
  Receipt Date: 20120426
  Transmission Date: 20140414
  Serious: Yes (Hospitalization)
  Sender: FDA-Public Use
  Company Number: PHEH2011US02378

PATIENT
  Age: 52 Year
  Sex: Female

DRUGS (1)
  1. GILENYA [Suspect]
     Indication: MULTIPLE SCLEROSIS
     Dates: start: 201012, end: 201202

REACTIONS (5)
  - PNEUMONIA [None]
  - Abdominal discomfort [None]
  - Feeling abnormal [None]
  - Bronchitis [None]
  - Infection [None]
